FAERS Safety Report 15200697 (Version 6)
Quarter: 2020Q1

REPORT INFORMATION
  Report Type: Spontaneous
  Country: JP (occurrence: JP)
  Receive Date: 20180726
  Receipt Date: 20200112
  Transmission Date: 20200409
  Serious: Yes (Other)
  Sender: FDA-Public Use
  Company Number: JP-BRISTOL-MYERS SQUIBB COMPANY-BMS-2018-055578

PATIENT
  Age: 61 Year
  Sex: Male
  Weight: 51 kg

DRUGS (13)
  1. OPDIVO [Suspect]
     Active Substance: NIVOLUMAB
     Indication: PRODUCT USED FOR UNKNOWN INDICATION
     Dosage: 140 MILLIGRAM
     Route: 041
     Dates: start: 20180604, end: 20190104
  2. GASMOTIN [Suspect]
     Active Substance: MOSAPRIDE CITRATE
     Indication: GASTRITIS
     Dosage: 5 MILLIGRAM, Q8H
     Route: 048
     Dates: start: 20180411, end: 2018
  3. ZOLPIDEM TARTRATE. [Concomitant]
     Active Substance: ZOLPIDEM TARTRATE
     Indication: INSOMNIA
     Dosage: 5 MILLIGRAM EVERYDAY
     Route: 048
     Dates: start: 20180423, end: 20190206
  4. OPDIVO [Suspect]
     Active Substance: NIVOLUMAB
     Indication: NON-SMALL CELL LUNG CANCER
     Dosage: 3 MG/KG, UNK
     Route: 041
     Dates: start: 20180417, end: 20180516
  5. GASMOTIN [Suspect]
     Active Substance: MOSAPRIDE CITRATE
     Indication: PRODUCT USED FOR UNKNOWN INDICATION
     Dosage: 5 MILLIGRAM, Q8H
     Route: 048
     Dates: start: 20180517, end: 20190301
  6. POLARAMINE [Suspect]
     Active Substance: DEXCHLORPHENIRAMINE MALEATE
     Indication: NON-SMALL CELL LUNG CANCER RECURRENT
     Dosage: 5 MILLIGRAM EVERYDAY
     Route: 041
     Dates: start: 20180417, end: 2018
  7. SODIUM CHLORIDE. [Concomitant]
     Active Substance: SODIUM CHLORIDE
     Indication: NON-SMALL CELL LUNG CANCER RECURRENT
     Dosage: 200 MILLILITER EVERYDAY
     Route: 041
     Dates: start: 20180417, end: 20190104
  8. NAIXAN [NAPROXEN] [Concomitant]
     Active Substance: NAPROXEN
     Indication: NON-SMALL CELL LUNG CANCER RECURRENT
     Dosage: 100 MILLIGRAM, Q8H
     Route: 048
     Dates: start: 20180326, end: 20190430
  9. POLAPREZINC [Concomitant]
     Active Substance: POLAPREZINC
     Indication: GASTRITIS
     Dosage: 75 MILLIGRAM, Q12H
     Route: 048
     Dates: start: 20180403, end: 20190301
  10. METOCLOPRAMIDE. [Suspect]
     Active Substance: METOCLOPRAMIDE
     Indication: PRODUCT USED FOR UNKNOWN INDICATION
     Dosage: UNK
     Route: 065
  11. FENTANYL. [Suspect]
     Active Substance: FENTANYL
     Indication: NON-SMALL CELL LUNG CANCER RECURRENT
     Dosage: 4 MILLIGRAM EVERYDAY
     Route: 062
     Dates: start: 20180217, end: 2018
  12. POLARAMINE [Suspect]
     Active Substance: DEXCHLORPHENIRAMINE MALEATE
     Indication: PRODUCT USED FOR UNKNOWN INDICATION
     Dosage: 5 MILLIGRAM EVERYDAY
     Route: 041
     Dates: start: 20180604, end: 20190104
  13. FENTANYL. [Suspect]
     Active Substance: FENTANYL
     Indication: PRODUCT USED FOR UNKNOWN INDICATION
     Dosage: 4 MILLIGRAM EVERYDAY
     Route: 062
     Dates: start: 20180517, end: 20181122

REACTIONS (2)
  - Myoclonus [Recovered/Resolved]
  - Akathisia [Unknown]

NARRATIVE: CASE EVENT DATE: 20180516
